FAERS Safety Report 7055476-0 (Version None)
Quarter: 2010Q4

REPORT INFORMATION
  Report Type: 
  Country: None (occurrence: None)
  Receive Date: 20101021
  Receipt Date: 20101014
  Transmission Date: 20110411
  Serious: Yes (Hospitalization, Other)
  Sender: FDA-Public Use
  Company Number: US-SANOFI-AVENTIS-2010SA063260

PATIENT
  Age: 52 Year
  Sex: Male

DRUGS (1)
  1. AMBIEN [Suspect]
     Dosage: SEVERAL PILLS NOS
     Route: 048

REACTIONS (6)
  - CONFUSIONAL STATE [None]
  - HALLUCINATION, VISUAL [None]
  - IMPAIRED DRIVING ABILITY [None]
  - INJURY [None]
  - INTENTIONAL OVERDOSE [None]
  - ROAD TRAFFIC ACCIDENT [None]
